FAERS Safety Report 7956322-0 (Version None)
Quarter: 2011Q4

REPORT INFORMATION
  Report Type: 
  Country: None (occurrence: None)
  Receive Date: 20111205
  Receipt Date: 20111130
  Transmission Date: 20120403
  Serious: Yes (Death)
  Sender: FDA-Public Use
  Company Number: JP-BAYER-200913464BYL

PATIENT
  Age: 73 Year
  Sex: Male
  Weight: 44 kg

DRUGS (16)
  1. TENORMIN [Concomitant]
     Dosage: SINCE BEFORE ADMINISTRATION
     Route: 048
     Dates: end: 20090926
  2. HUMALOG [Concomitant]
     Dosage: SINCE BEFORE ADMINISTRATION
     Route: 058
     Dates: end: 20090926
  3. URSO 250 [Concomitant]
     Dosage: SINCE BEFORE ADMINISTRATION
     Route: 048
  4. NIFLAN [Concomitant]
     Dosage: SINCE BEFORE ADMINISTRATION
     Route: 031
  5. SOLDACTONE [Concomitant]
     Dosage: 100 MG (DAILY DOSE), , INTRAVENOUS
     Route: 042
     Dates: start: 20090918, end: 20090927
  6. FAMOTIDINE [Concomitant]
     Dosage: SINCE BEFORE ADMINISTRATION
     Route: 048
     Dates: end: 20090903
  7. LASIX [Concomitant]
     Dosage: SINCE BEFORE ADMINISTRATION
     Route: 048
     Dates: end: 20090926
  8. ALLOPURINOL [Concomitant]
     Dosage: SINCE BEFORE ADMINISTRATION
     Route: 048
     Dates: end: 20090926
  9. NEXAVAR [Suspect]
     Indication: HEPATIC NEOPLASM MALIGNANT
     Route: 048
     Dates: start: 20090831, end: 20090926
  10. LASIX [Concomitant]
     Dosage: 10 MG (DAILY DOSE), , INTRAVENOUS
     Route: 042
     Dates: start: 20090918, end: 20090927
  11. KARY UNI [Concomitant]
     Dosage: SINCE BEFORE ADMINISTRATION
     Route: 031
     Dates: end: 20090926
  12. CARNACULIN [Concomitant]
     Dosage: SINCE BEFORE ADMINISTRATION
     Route: 048
  13. ALDACTONE [Concomitant]
     Dosage: SINCE BEFORE ADMINISTRATION
     Route: 048
     Dates: end: 20090926
  14. ADONA [Concomitant]
     Dosage: SINCE BEFORE ADMINISTRATION
     Route: 048
  15. JUZENTAIHOTO [Concomitant]
     Dosage: SINCE BEFORE ADMINISTRATION
     Route: 048
     Dates: end: 20090926
  16. ALLEGRA [Concomitant]
     Dosage: SINCE BEFORE ADMINISTRATION
     Route: 048
     Dates: end: 20090926

REACTIONS (6)
  - DECREASED APPETITE [None]
  - SHOCK HAEMORRHAGIC [None]
  - DYSPHONIA [None]
  - PALMAR-PLANTAR ERYTHRODYSAESTHESIA SYNDROME [None]
  - BLOOD PRESSURE INCREASED [None]
  - DIARRHOEA [None]
